FAERS Safety Report 10154132 (Version 1)
Quarter: 2014Q2

REPORT INFORMATION
  Report Type: Spontaneous
  Country: CZ (occurrence: CZ)
  Receive Date: 20140506
  Receipt Date: 20140506
  Transmission Date: 20141212
  Serious: Yes (Other)
  Sender: FDA-Public Use
  Company Number: CZ-JNJFOC-20140415041

PATIENT
  Sex: Male

DRUGS (3)
  1. DUROGESIC [Suspect]
     Indication: PAIN
     Route: 062
  2. MORPHINE [Suspect]
     Indication: PAIN
     Route: 065
  3. MORPHINE [Suspect]
     Indication: PAIN
     Route: 065

REACTIONS (4)
  - Suicidal ideation [Unknown]
  - Drug withdrawal syndrome [Recovered/Resolved]
  - Insomnia [Unknown]
  - Drug ineffective [Recovered/Resolved]
